FAERS Safety Report 24815178 (Version 2)
Quarter: 2025Q1

REPORT INFORMATION
  Report Type: Spontaneous
  Country: NL (occurrence: NL)
  Receive Date: 20250107
  Receipt Date: 20250112
  Transmission Date: 20250408
  Serious: Yes (Congenital Anomaly)
  Sender: ORGANON
  Company Number: NL-ORGANON-O2501NLD000194

PATIENT
  Sex: Male

DRUGS (1)
  1. ETONOGESTREL [Suspect]
     Active Substance: ETONOGESTREL
     Route: 064
     Dates: start: 202403

REACTIONS (2)
  - Cryptorchism [Unknown]
  - Foetal exposure during pregnancy [Recovered/Resolved]

NARRATIVE: CASE EVENT DATE: 20240101
